FAERS Safety Report 10543842 (Version 2)
Quarter: 2014Q4

REPORT INFORMATION
  Report Type: Spontaneous
  Country: US (occurrence: US)
  Receive Date: 20141027
  Receipt Date: 20141027
  Transmission Date: 20150529
  Serious: No
  Sender: FDA-Public Use
  Company Number: US-BAUSCH-SYM-2014-15037

PATIENT
  Age: 72 Year
  Sex: Male
  Weight: 61.29 kg

DRUGS (2)
  1. ATIVAN [Suspect]
     Active Substance: LORAZEPAM
     Dosage: HALF TABLET
     Route: 048
  2. ATIVAN [Suspect]
     Active Substance: LORAZEPAM
     Indication: ANXIETY
     Dosage: 0.5 TO 1 MG ONE TO THREE TIMES A DAY
     Route: 048
     Dates: start: 201307

REACTIONS (4)
  - Muscle spasms [Unknown]
  - Paraesthesia [Unknown]
  - Weight decreased [Unknown]
  - Chills [Recovering/Resolving]

NARRATIVE: CASE EVENT DATE: 201307
